FAERS Safety Report 8544967-9 (Version None)
Quarter: 2012Q3

REPORT INFORMATION
  Report Type: 
  Country: None (occurrence: None)
  Receive Date: 20120727
  Receipt Date: 20120724
  Transmission Date: 20120928
  Serious: Yes (Life-Threatening, Hospitalization)
  Sender: FDA-Public Use
  Company Number: DE-ROCHE-1091640

PATIENT
  Sex: Female
  Weight: 63 kg

DRUGS (2)
  1. MABTHERA [Suspect]
     Indication: MALIGNANT LYMPHOID NEOPLASM
     Dosage: MOST RECENT DOSE PRIOR TO SAE 25/JUN/2012
     Route: 042
     Dates: start: 20120305
  2. BENDAMUSTINE HYDROCHLORIDE [Suspect]
     Indication: MALIGNANT LYMPHOID NEOPLASM
     Dosage: MOST RECENT DOSE PRIOR TO SAE 26/JUN/2012
     Route: 042
     Dates: start: 20120306

REACTIONS (1)
  - RENAL FAILURE [None]
